FAERS Safety Report 9651416 (Version 1)
Quarter: 2013Q4

REPORT INFORMATION
  Report Type: Spontaneous
  Country: SE (occurrence: SE)
  Receive Date: 20131029
  Receipt Date: 20131029
  Transmission Date: 20140711
  Serious: Yes (Hospitalization, Disabling, Other)
  Sender: FDA-Public Use
  Company Number: SE-ASTRAZENECA-2013SE77823

PATIENT
  Age: 40 Year
  Sex: Female

DRUGS (4)
  1. SEROQUEL DEPOT [Suspect]
     Route: 048
     Dates: start: 20060101
  2. TRILAFON [Suspect]
     Route: 048
     Dates: start: 20060101
  3. CISORDINOL DEPOT [Suspect]
     Route: 058
  4. CISORDINOL ACUTARD [Suspect]
     Route: 058
     Dates: start: 20060101, end: 20070101

REACTIONS (8)
  - Exposure during pregnancy [Unknown]
  - Abortion spontaneous [Unknown]
  - Acne [Unknown]
  - Eczema [Unknown]
  - Nodule [Unknown]
  - Oedema [Unknown]
  - Hypersensitivity [Unknown]
  - Weight increased [Unknown]
